FAERS Safety Report 11394089 (Version 1)
Quarter: 2015Q3

REPORT INFORMATION
  Report Type: Spontaneous
  Country: US (occurrence: US)
  Receive Date: 20150819
  Receipt Date: 20150819
  Transmission Date: 20151125
  Serious: No
  Sender: FDA-Public Use
  Company Number: US-TEVA-570990USA

PATIENT
  Sex: Male

DRUGS (2)
  1. ARIPIPRAZOLE. [Suspect]
     Active Substance: ARIPIPRAZOLE
     Indication: AUTISM
  2. ARIPIPRAZOLE. [Suspect]
     Active Substance: ARIPIPRAZOLE
     Indication: BIPOLAR DISORDER

REACTIONS (7)
  - Drug ineffective [Unknown]
  - Impulsive behaviour [Unknown]
  - Aggression [Unknown]
  - Anger [Unknown]
  - Affect lability [Unknown]
  - Irritability [Unknown]
  - Product substitution issue [Unknown]
